FAERS Safety Report 18547467 (Version 3)
Quarter: 2021Q1

REPORT INFORMATION
  Report Type: Spontaneous
  Country: US (occurrence: US)
  Receive Date: 20201125
  Receipt Date: 20210319
  Transmission Date: 20210419
  Serious: Yes (Hospitalization)
  Sender: FDA-Public Use
  Company Number: US-TAKEDA-2020TUS052547

PATIENT
  Age: 81 Year
  Sex: Female

DRUGS (1)
  1. NINLARO [Suspect]
     Active Substance: IXAZOMIB CITRATE
     Indication: PLASMA CELL MYELOMA
     Dosage: 4 MILLIGRAM
     Route: 048
     Dates: start: 20201112

REACTIONS (3)
  - Diarrhoea [Unknown]
  - Blood pressure abnormal [Unknown]
  - Nasal discomfort [Unknown]

NARRATIVE: CASE EVENT DATE: 202011
